FAERS Safety Report 8273397-2 (Version None)
Quarter: 2012Q2

REPORT INFORMATION
  Report Type: 
  Country: None (occurrence: None)
  Receive Date: 20120411
  Receipt Date: 20120409
  Transmission Date: 20120825
  Serious: Yes (Death)
  Sender: FDA-Public Use
  Company Number: PHHY2012MX025002

PATIENT
  Sex: Female

DRUGS (2)
  1. GLEEVEC [Suspect]
     Dosage: 800 MG, DAILY
  2. GLEEVEC [Suspect]
     Indication: CHRONIC MYELOID LEUKAEMIA
     Dosage: 600 MG, UNK
     Route: 048

REACTIONS (1)
  - CHRONIC MYELOID LEUKAEMIA [None]
